FAERS Safety Report 9392640 (Version 4)
Quarter: 2013Q4

REPORT INFORMATION
  Report Type: Spontaneous
  Country: DE (occurrence: DE)
  Receive Date: 20130710
  Receipt Date: 20131022
  Transmission Date: 20140711
  Serious: Yes (Death)
  Sender: FDA-Public Use
  Company Number: DE-CELGENEUS-062-50794-13070124

PATIENT
  Sex: Female

DRUGS (9)
  1. VIDAZA [Suspect]
     Indication: ACUTE MYELOID LEUKAEMIA
     Route: 058
     Dates: start: 20091207, end: 201007
  2. CLARITHROMYCIN [Concomitant]
     Indication: INFECTION PROPHYLAXIS
     Route: 048
  3. FAMCICLOVIR [Concomitant]
     Indication: INFECTION PROPHYLAXIS
     Route: 048
  4. BISOPROLOL [Concomitant]
     Indication: INFECTION PROPHYLAXIS
     Route: 048
  5. ATOQUAVONE [Concomitant]
     Indication: INFECTION PROPHYLAXIS
     Route: 048
  6. CIPROFLOXACIN [Concomitant]
     Indication: INFECTION PROPHYLAXIS
     Route: 048
  7. ITRACONAZOL [Concomitant]
     Indication: INFECTION PROPHYLAXIS
     Route: 048
  8. URSODEOXYCHOLIC ACID [Concomitant]
     Indication: INFECTION PROPHYLAXIS
     Route: 048
  9. POTASSIUM [Concomitant]
     Indication: INFECTION PROPHYLAXIS
     Route: 048

REACTIONS (2)
  - Acute myeloid leukaemia [Fatal]
  - No therapeutic response [Unknown]
